FAERS Safety Report 5350016-6 (Version None)
Quarter: 2007Q2

REPORT INFORMATION
  Report Type: 
  Country: None (occurrence: None)
  Receive Date: 20070607
  Receipt Date: 20070529
  Transmission Date: 20071010
  Serious: Yes (Other)
  Sender: FDA-Public Use
  Company Number: KR-PFIZER INC-2007045968

PATIENT

DRUGS (1)
  1. IRINOTECAN HCL [Suspect]
     Indication: METASTATIC GASTRIC CANCER

REACTIONS (1)
  - COLITIS ISCHAEMIC [None]
